FAERS Safety Report 17630292 (Version 1)
Quarter: 2020Q2

REPORT INFORMATION
  Report Type: Spontaneous
  Country: US (occurrence: US)
  Receive Date: 20200404
  Receipt Date: 20200404
  Transmission Date: 20200713
  Serious: Yes (Other)
  Sender: FDA-Public Use
  Company Number: None

PATIENT
  Age: 34 Year
  Sex: Male
  Weight: 89.55 kg

DRUGS (1)
  1. OLANZAPINE 10MG FROM WESTON FL [Suspect]
     Active Substance: OLANZAPINE
     Indication: SCHIZOPHRENIA
     Dosage: ?          QUANTITY:2 TABLET(S);?
     Route: 048
     Dates: start: 20200401, end: 20200402

REACTIONS (7)
  - Product quality issue [None]
  - Haemorrhage [None]
  - Feeling abnormal [None]
  - Pain [None]
  - Musculoskeletal stiffness [None]
  - Dyspnoea [None]
  - Suspected product tampering [None]

NARRATIVE: CASE EVENT DATE: 20200401
